FAERS Safety Report 6755538-9 (Version None)
Quarter: 2010Q2

REPORT INFORMATION
  Report Type: 
  Country: None (occurrence: None)
  Receive Date: 20100604
  Receipt Date: 20100528
  Transmission Date: 20101027
  Serious: Yes (Other)
  Sender: FDA-Public Use
  Company Number: US-ASTRAZENECA-2010SE24895

PATIENT
  Age: 56 Year
  Sex: Male

DRUGS (7)
  1. NEXIUM [Suspect]
     Indication: ULCER
     Route: 048
     Dates: start: 20000101, end: 20100501
  2. BONIVA [Concomitant]
  3. CALCIUM CARBONATE [Concomitant]
  4. VITAMIN D [Concomitant]
  5. NEURONTIN [Concomitant]
  6. INDOCET [Concomitant]
  7. TRAZODONE HCL [Concomitant]

REACTIONS (6)
  - ASPIRATION [None]
  - BONE DENSITY DECREASED [None]
  - DRUG DOSE OMISSION [None]
  - OSTEOPOROSIS [None]
  - PATHOLOGICAL FRACTURE [None]
  - REFLUX OESOPHAGITIS [None]
